FAERS Safety Report 9468026 (Version 2)
Quarter: 2013Q3

REPORT INFORMATION
  Report Type: Spontaneous
  Country: GR (occurrence: GR)
  Receive Date: 20130821
  Receipt Date: 20130821
  Transmission Date: 20140515
  Serious: Yes (Life-Threatening, Hospitalization, Other)
  Sender: FDA-Public Use
  Company Number: GR-PFIZER INC-GR-WYE-G01306908

PATIENT
  Age: 41 Year
  Sex: Female
  Weight: 60 kg

DRUGS (2)
  1. EFEXOR XR [Suspect]
     Indication: DEPRESSION
     Dosage: 75MG X 20-40 CAPSULES, SINGLE
     Route: 048
     Dates: start: 20080215, end: 20080215
  2. XANAX [Suspect]
     Dosage: 1MG X 90 TABLETS, SINGLE
     Route: 048
     Dates: start: 20080215, end: 20080215

REACTIONS (8)
  - Intentional overdose [Recovered/Resolved]
  - Suicide attempt [Unknown]
  - Coma [Recovered/Resolved]
  - Hypothermia [Recovered/Resolved]
  - Cardiac failure [Unknown]
  - Myocardial oedema [Unknown]
  - Cardiomyopathy [Unknown]
  - Cardiotoxicity [Unknown]
